FAERS Safety Report 8614332-4 (Version None)
Quarter: 2012Q3

REPORT INFORMATION
  Report Type: 
  Country: None (occurrence: None)
  Receive Date: 20120823
  Receipt Date: 20120521
  Transmission Date: 20120928
  Serious: No
  Sender: FDA-Public Use
  Company Number: US-009507513-2012SP028551

PATIENT

DRUGS (1)
  1. MIRALAX [Suspect]
     Indication: COLONOSCOPY
     Dosage: 238 G, ONCE
     Route: 048

REACTIONS (2)
  - OVERDOSE [None]
  - OFF LABEL USE [None]
